FAERS Safety Report 6959623-8 (Version None)
Quarter: 2010Q3

REPORT INFORMATION
  Report Type: 
  Country: None (occurrence: None)
  Receive Date: 20100827
  Receipt Date: 20100817
  Transmission Date: 20110219
  Serious: Yes (Other)
  Sender: FDA-Public Use
  Company Number: 015534

PATIENT
  Sex: Male
  Weight: 57 kg

DRUGS (2)
  1. VIMPAT [Suspect]
     Indication: EPILEPSY
     Dosage: 100 TWICE DAILY ORAL
     Route: 048
     Dates: start: 20100312
  2. ERGENYL [Concomitant]

REACTIONS (1)
  - WEIGHT DECREASED [None]
